FAERS Safety Report 17831018 (Version 2)
Quarter: 2020Q2

REPORT INFORMATION
  Report Type: Spontaneous
  Country: US (occurrence: US)
  Receive Date: 20200527
  Receipt Date: 20200530
  Transmission Date: 20200714
  Serious: No
  Sender: FDA-Public Use
  Company Number: US-TEVA-2020-US-1239481

PATIENT
  Sex: Male

DRUGS (1)
  1. MONTELUKAST SODIUM TEVA [Suspect]
     Active Substance: MONTELUKAST SODIUM
     Route: 065

REACTIONS (3)
  - Drug ineffective [Unknown]
  - Product substitution issue [Unknown]
  - Adverse event [Unknown]
